FAERS Safety Report 22397617 (Version 1)
Quarter: 2023Q2

REPORT INFORMATION
  Report Type: Other
  Country: CA (occurrence: CA)
  Receive Date: 20230602
  Receipt Date: 20230602
  Transmission Date: 20230722
  Serious: Yes (Other)
  Sender: FDA-Public Use
  Company Number: CA-APOTEX-2023AP008586

PATIENT
  Sex: Female

DRUGS (3)
  1. PACLITAXEL [Suspect]
     Active Substance: PACLITAXEL
     Indication: Ovarian cancer
     Dosage: UNK
     Route: 065
  2. LETROZOLE [Suspect]
     Active Substance: LETROZOLE
     Indication: Ovarian cancer
     Dosage: UNK
     Route: 065
  3. EDOXABAN [Concomitant]
     Active Substance: EDOXABAN
     Indication: Thrombosis
     Dosage: UNK
     Route: 065

REACTIONS (4)
  - Cough [Unknown]
  - Malignant neoplasm progression [Unknown]
  - Ovarian cancer [Unknown]
  - Product use in unapproved indication [Unknown]
